FAERS Safety Report 16486044 (Version 1)
Quarter: 2019Q2

REPORT INFORMATION
  Report Type: Spontaneous
  Country: CN (occurrence: CN)
  Receive Date: 20190627
  Receipt Date: 20190627
  Transmission Date: 20190711
  Serious: Yes (Hospitalization, Other)
  Sender: FDA-Public Use
  Company Number: CN-JNJFOC-20190626135

PATIENT
  Age: 1 Month
  Sex: Female
  Weight: 3.3 kg

DRUGS (2)
  1. KEFADIM [Suspect]
     Active Substance: CEFTAZIDIME
     Indication: PYREXIA
     Route: 041
     Dates: start: 20190531, end: 20190603
  2. CHILDRENS MOTRIN [Suspect]
     Active Substance: IBUPROFEN
     Indication: PYREXIA
     Route: 048
     Dates: start: 20190531, end: 20190601

REACTIONS (3)
  - Renal failure [Not Recovered/Not Resolved]
  - Cardiac failure [Not Recovered/Not Resolved]
  - Acute hepatic failure [Not Recovered/Not Resolved]

NARRATIVE: CASE EVENT DATE: 20190603
